FAERS Safety Report 4603332-7 (Version None)
Quarter: 2005Q1

REPORT INFORMATION
  Report Type: 
  Country: None (occurrence: None)
  Receive Date: 20050309
  Receipt Date: 20050303
  Transmission Date: 20050727
  Serious: Yes (Hospitalization)
  Sender: FDA-Public Use
  Company Number: US-MERCK-0503USA00521

PATIENT
  Age: 58 Year
  Sex: Male

DRUGS (5)
  1. PROPECIA [Suspect]
     Indication: MALE PATTERN BALDNESS
     Route: 048
     Dates: start: 19980101, end: 20050101
  2. PRINIVIL [Concomitant]
     Route: 048
  3. TENORETIC 100 [Concomitant]
     Route: 065
  4. ZOCOR [Concomitant]
     Route: 048
  5. VITAMINS (UNSPECIFIED) [Concomitant]
     Route: 065

REACTIONS (1)
  - PROSTATE CANCER [None]
